FAERS Safety Report 20582774 (Version 2)
Quarter: 2022Q2

REPORT INFORMATION
  Report Type: Report from Study
  Country: KR (occurrence: KR)
  Receive Date: 20220311
  Receipt Date: 20220421
  Transmission Date: 20220720
  Serious: Yes (Hospitalization)
  Sender: FDA-Public Use
  Company Number: KR-GLAXOSMITHKLINE-KR2022GSK044533

PATIENT
  Age: 48 Year
  Sex: Female
  Weight: 54.6 kg

DRUGS (11)
  1. BELIMUMAB [Suspect]
     Active Substance: BELIMUMAB
     Indication: Systemic lupus erythematosus
     Dosage: 520
     Route: 042
     Dates: start: 20211210, end: 20211210
  2. BELIMUMAB [Suspect]
     Active Substance: BELIMUMAB
     Dosage: 520
     Route: 042
     Dates: start: 20211223, end: 20211223
  3. BELIMUMAB [Suspect]
     Active Substance: BELIMUMAB
     Dosage: 520
     Route: 042
     Dates: start: 20220105, end: 20220105
  4. BELIMUMAB [Suspect]
     Active Substance: BELIMUMAB
     Dosage: 520
     Route: 042
     Dates: start: 20220203
  5. MYCOPHENOLATE MOFETIL [Concomitant]
     Active Substance: MYCOPHENOLATE MOFETIL
     Indication: Product used for unknown indication
     Dosage: 500 MG, BID
     Route: 048
     Dates: start: 20210909, end: 20220104
  6. MYCOPHENOLATE MOFETIL [Concomitant]
     Active Substance: MYCOPHENOLATE MOFETIL
     Dosage: 500 MG, 1D
     Route: 048
     Dates: start: 20220105
  7. PREDNISOLONE [Concomitant]
     Active Substance: PREDNISOLONE
     Indication: Product used for unknown indication
     Dosage: 5 MG, BID
     Route: 048
     Dates: start: 20210909, end: 20220309
  8. PREDNISOLONE [Concomitant]
     Active Substance: PREDNISOLONE
     Dosage: 10 MG, BID
     Route: 048
     Dates: start: 20220310
  9. NAXEN-S TABLET [Concomitant]
     Indication: Arthralgia
     Dosage: 1 DF, BID
     Route: 048
     Dates: start: 20220310
  10. ONE ALFA [Concomitant]
     Indication: Osteoporosis
     Dosage: 0.5 UG, 1D
     Route: 048
     Dates: start: 20210603
  11. NAPROXEN [Concomitant]
     Active Substance: NAPROXEN
     Indication: Arthralgia

REACTIONS (1)
  - COVID-19 [Recovered/Resolved]

NARRATIVE: CASE EVENT DATE: 20220212
